FAERS Safety Report 6698715-8 (Version None)
Quarter: 2010Q2

REPORT INFORMATION
  Report Type: 
  Country: None (occurrence: None)
  Receive Date: 20100427
  Receipt Date: 20090515
  Transmission Date: 20101027
  Serious: No
  Sender: FDA-Public Use
  Company Number: US-ASTRAZENECA-2009UW12678

PATIENT
  Sex: Female
  Weight: 68 kg

DRUGS (2)
  1. ZOMIG [Suspect]
     Indication: MIGRAINE
     Route: 048
  2. BIRTH CONTROL PILL [Concomitant]

REACTIONS (7)
  - ABDOMINAL DISCOMFORT [None]
  - CHEST PAIN [None]
  - DIZZINESS [None]
  - DRUG INEFFECTIVE [None]
  - GAIT DISTURBANCE [None]
  - NECK PAIN [None]
  - PRESYNCOPE [None]
